FAERS Safety Report 10186537 (Version 2)
Quarter: 2014Q2

REPORT INFORMATION
  Report Type: Spontaneous
  Country: SE (occurrence: SE)
  Receive Date: 20140521
  Receipt Date: 20140521
  Transmission Date: 20141212
  Serious: Yes (Hospitalization)
  Sender: FDA-Public Use
  Company Number: SE-ACTAVIS-2014-06193

PATIENT
  Sex: Female

DRUGS (6)
  1. EPIRUBICIN ACTAVIS [Suspect]
     Indication: BREAST CANCER
     Dosage: 116 MG, UNK
     Route: 042
  2. FLUOROURACIL [Suspect]
     Indication: BREAST CANCER
     Dosage: 950 MG, UNK
     Route: 042
  3. SENDOXAN [Suspect]
     Indication: BREAST CANCER
     Dosage: 940 MG, UNK
     Route: 042
  4. NIVESTIM [Concomitant]
     Indication: PRODUCT USED FOR UNKNOWN INDICATION
     Dosage: UNK
     Route: 058
  5. PANODIL [Concomitant]
     Indication: PRODUCT USED FOR UNKNOWN INDICATION
     Dosage: PRN
     Route: 065
  6. IBUMETIN [Concomitant]
     Indication: PRODUCT USED FOR UNKNOWN INDICATION
     Dosage: PRN

REACTIONS (7)
  - Febrile neutropenia [Unknown]
  - Granulocyte count decreased [Unknown]
  - White blood cell count decreased [Unknown]
  - Platelet count decreased [Unknown]
  - Lymphocyte count decreased [Unknown]
  - Monocyte count decreased [Unknown]
  - Malaise [Unknown]
